FAERS Safety Report 5654576-7 (Version None)
Quarter: 2008Q1

REPORT INFORMATION
  Report Type: 
  Country: None (occurrence: None)
  Receive Date: 20080307
  Receipt Date: 20080226
  Transmission Date: 20080703
  Serious: Yes (Other)
  Sender: FDA-Public Use
  Company Number: US-JNJFOC-20080300456

PATIENT
  Sex: Female
  Weight: 90.72 kg

DRUGS (9)
  1. DURAGESIC-100 [Suspect]
     Indication: MIGRAINE
     Route: 062
  2. FENTANYL TRANSDERMAL SYSTEM [Suspect]
     Indication: MIGRAINE
     Route: 062
  3. COMPAZINE [Concomitant]
     Indication: NAUSEA
     Route: 048
  4. FIORICET [Concomitant]
     Indication: PAIN
     Route: 048
  5. PROTONIX [Concomitant]
     Indication: GASTROOESOPHAGEAL REFLUX DISEASE
     Route: 065
  6. VASOTEC [Concomitant]
     Indication: HYPERTENSION
     Route: 048
  7. TENORETIC 100 [Concomitant]
     Indication: HYPERTENSION
     Route: 048
  8. CHANTIX [Concomitant]
     Indication: SMOKING CESSATION THERAPY
     Route: 048
  9. EFFEXOR XR [Concomitant]
     Indication: DEPRESSION
     Route: 048

REACTIONS (5)
  - BREAKTHROUGH PAIN [None]
  - HYPERTENSION [None]
  - INAPPROPRIATE SCHEDULE OF DRUG ADMINISTRATION [None]
  - NEPHROLITHIASIS [None]
  - PHARMACEUTICAL PRODUCT COMPLAINT [None]
